FAERS Safety Report 9012554 (Version 1)
Quarter: 2013Q1

REPORT INFORMATION
  Report Type: Spontaneous
  Country: IT (occurrence: IT)
  Receive Date: 20130114
  Receipt Date: 20130114
  Transmission Date: 20140127
  Serious: Yes (Hospitalization)
  Sender: FDA-Public Use
  Company Number: IT-TEVA-379883ISR

PATIENT
  Age: 71 Year
  Sex: Female

DRUGS (7)
  1. ALPRAZOLAM [Suspect]
     Indication: ANXIETY
     Dosage: 30 GTT DAILY;
     Route: 048
     Dates: start: 20080101, end: 20121122
  2. ANAFRANIL [Interacting]
     Indication: BIPOLAR DISORDER
     Dosage: 1 DOSAGE FORMS DAILY;
     Route: 048
     Dates: start: 20121022, end: 20121122
  3. LAMICTAL [Suspect]
     Indication: BIPOLAR DISORDER
     Dosage: 1 DOSAGE FORMS DAILY;
     Route: 048
     Dates: start: 20080101, end: 20121122
  4. FEVARIN [Interacting]
     Indication: DEPRESSION
     Dosage: .5 DOSAGE FORMS DAILY;
     Route: 048
     Dates: start: 20110101, end: 20121122
  5. PROVISACOR [Concomitant]
     Indication: TYPE 2 DIABETES MELLITUS
  6. CARDIOASPIRIN [Concomitant]
  7. METFORMINA [Concomitant]
     Indication: TYPE 2 DIABETES MELLITUS

REACTIONS (3)
  - Drug interaction [Recovering/Resolving]
  - Tremor [Recovering/Resolving]
  - Muscle rigidity [Recovering/Resolving]
